FAERS Safety Report 12127348 (Version 1)
Quarter: 2016Q1

REPORT INFORMATION
  Report Type: Report from Study
  Country: US (occurrence: US)
  Receive Date: 20160229
  Receipt Date: 20160229
  Transmission Date: 20160526
  Serious: Yes (Hospitalization)
  Sender: FDA-Public Use
  Company Number: US-SIGMA-TAU US-2016STPI000129

PATIENT
  Age: 27 Year
  Sex: Female

DRUGS (16)
  1. CYCLOPHOSPHAMIDE. [Suspect]
     Active Substance: CYCLOPHOSPHAMIDE
     Indication: ACUTE LYMPHOCYTIC LEUKAEMIA
     Dosage: 1920 MG, X1
     Route: 042
     Dates: start: 20151012, end: 20151109
  2. VALACYCLOVIR [Concomitant]
     Active Substance: VALACYCLOVIR HYDROCHLORIDE
     Dosage: 500 MG, UNK
     Dates: start: 20160121
  3. ONCASPAR [Suspect]
     Active Substance: PEGASPARGASE
     Dosage: 3780 IU, X1
     Route: 042
     Dates: start: 20160120, end: 20160120
  4. PURINETHOL [Suspect]
     Active Substance: MERCAPTOPURINE
     Indication: ACUTE LYMPHOCYTIC LEUKAEMIA
     Dosage: 100 MG, QD
     Route: 048
     Dates: start: 20151010
  5. VINCRISTINE [Suspect]
     Active Substance: VINCRISTINE
     Dosage: 1 MG, QW
     Route: 042
     Dates: start: 20151109, end: 20151109
  6. PREDNISONE. [Suspect]
     Active Substance: PREDNISONE
     Indication: ACUTE LYMPHOCYTIC LEUKAEMIA
     Dosage: 30 MG, QD
     Route: 048
     Dates: start: 20151026
  7. ONCASPAR [Suspect]
     Active Substance: PEGASPARGASE
     Dosage: 3880 IU, X1
     Route: 042
     Dates: start: 20151026, end: 20151026
  8. ONCASPAR [Suspect]
     Active Substance: PEGASPARGASE
     Indication: ACUTE LYMPHOCYTIC LEUKAEMIA
     Dosage: 3780 IU, X1
     Route: 042
     Dates: start: 20150916, end: 20150916
  9. METHOTREXATE [Suspect]
     Active Substance: METHOTREXATE
     Indication: ACUTE LYMPHOCYTIC LEUKAEMIA
     Dosage: UNK UNK, Q2W
     Route: 037
     Dates: start: 20151012
  10. DOXORUBICIN [Suspect]
     Active Substance: DOXORUBICIN
     Indication: ACUTE LYMPHOCYTIC LEUKAEMIA
     Dosage: 113 MG, QD
     Route: 042
     Dates: start: 20150903, end: 20150905
  11. CYTARABINE. [Suspect]
     Active Substance: CYTARABINE
     Indication: ACUTE LYMPHOCYTIC LEUKAEMIA
     Dosage: 144 MG, UNK
     Route: 042
     Dates: start: 20151012, end: 20151116
  12. VINCRISTINE [Suspect]
     Active Substance: VINCRISTINE
     Indication: ACUTE LYMPHOCYTIC LEUKAEMIA
     Dosage: 2 MG, QW
     Route: 042
     Dates: start: 20150903, end: 20150923
  13. METHOTREXATE [Suspect]
     Active Substance: METHOTREXATE
     Dosage: 9450 MG, X1
     Route: 042
     Dates: start: 20160105, end: 20160119
  14. TRAMADOL. [Concomitant]
     Active Substance: TRAMADOL
     Dosage: 100 MG, UNK
     Dates: start: 20160121
  15. PURINETHOL [Suspect]
     Active Substance: MERCAPTOPURINE
     Dosage: 12 MG, QD
     Dates: start: 20151112
  16. VINCRISTINE [Suspect]
     Active Substance: VINCRISTINE
     Dosage: 0.5 MG, QW
     Route: 042
     Dates: start: 20151123, end: 20151123

REACTIONS (1)
  - Pyrexia [Not Recovered/Not Resolved]

NARRATIVE: CASE EVENT DATE: 20160124
